FAERS Safety Report 16224938 (Version 2)
Quarter: 2019Q2

REPORT INFORMATION
  Report Type: Spontaneous
  Country: NZ (occurrence: NZ)
  Receive Date: 20190422
  Receipt Date: 20190514
  Transmission Date: 20190711
  Serious: Yes (Death, Other)
  Sender: FDA-Public Use
  Company Number: NZ-009507513-1904NZL006556

PATIENT
  Age: 45 Year
  Sex: Male

DRUGS (1)
  1. KEYTRUDA [Suspect]
     Active Substance: PEMBROLIZUMAB
     Indication: LUNG CARCINOMA CELL TYPE UNSPECIFIED STAGE IV
     Dosage: ONE DOSE, EVERY THREE WEEKS

REACTIONS (5)
  - Product use in unapproved indication [Unknown]
  - Cough [Unknown]
  - Death [Fatal]
  - Asthenia [Unknown]
  - Dyspnoea [Unknown]
